FAERS Safety Report 16681657 (Version 1)
Quarter: 2019Q3

REPORT INFORMATION
  Report Type: Spontaneous
  Country: CA (occurrence: CA)
  Receive Date: 20190808
  Receipt Date: 20190808
  Transmission Date: 20191004
  Serious: Yes (Hospitalization)
  Sender: FDA-Public Use
  Company Number: CA-TEVA-2019-CA-1087517

PATIENT
  Age: 21 Year
  Sex: Female
  Weight: 81 kg

DRUGS (4)
  1. HYDROMORPHONE HYDROCHLORIDE. [Suspect]
     Active Substance: HYDROMORPHONE HYDROCHLORIDE
     Indication: PRODUCT USED FOR UNKNOWN INDICATION
     Route: 065
  2. BUPRENORPHINE HYDROCHLORIDE. [Suspect]
     Active Substance: BUPRENORPHINE HYDROCHLORIDE
     Indication: DRUG DEPENDENCE
     Dosage: .5 DOSAGE FORMS DAILY;
     Route: 048
  3. NICOTINE. [Concomitant]
     Active Substance: NICOTINE
  4. BUPRENORPHINE HYDROCHLORIDE/NALOXONE HYDROCHLORIDE [Suspect]
     Active Substance: BUPRENORPHINE HYDROCHLORIDE\NALOXONE HYDROCHLORIDE
     Indication: DRUG DEPENDENCE
     Dosage: 2 MILLIGRAM DAILY;
     Route: 048

REACTIONS (5)
  - Drug abuse [Unknown]
  - Product preparation error [Unknown]
  - Hyperemesis gravidarum [Unknown]
  - Nausea [Unknown]
  - Product use issue [Unknown]
